FAERS Safety Report 17031260 (Version 1)
Quarter: 2019Q4

REPORT INFORMATION
  Report Type: Report from Study
  Country: DE (occurrence: DE)
  Receive Date: 20191114
  Receipt Date: 20191114
  Transmission Date: 20200122
  Serious: Yes (Death, Hospitalization)
  Sender: FDA-Public Use
  Company Number: DE-BAXTER-2019BAX022897

PATIENT
  Age: 52 Year
  Sex: Female
  Weight: 82 kg

DRUGS (6)
  1. GRANISETRON [Concomitant]
     Active Substance: GRANISETRON
     Indication: PREMEDICATION
     Route: 065
  2. DEXAMETHASONE. [Concomitant]
     Active Substance: DEXAMETHASONE
     Indication: PREMEDICATION
     Route: 065
  3. TRABECTEDIN [Suspect]
     Active Substance: TRABECTEDIN
     Route: 042
     Dates: start: 20161212
  4. DOXIL [Suspect]
     Active Substance: DOXORUBICIN HYDROCHLORIDE
     Route: 042
     Dates: start: 20161212
  5. TRABECTEDIN [Suspect]
     Active Substance: TRABECTEDIN
     Indication: OVARIAN CANCER
     Dosage: CYCLE 1
     Route: 042
     Dates: start: 20161031, end: 20161031
  6. DOXIL [Suspect]
     Active Substance: DOXORUBICIN HYDROCHLORIDE
     Indication: OVARIAN CANCER
     Dosage: CYCLE 1.
     Route: 042
     Dates: start: 20161031, end: 20161031

REACTIONS (2)
  - Disease progression [Fatal]
  - Pleural effusion [Recovered/Resolved]

NARRATIVE: CASE EVENT DATE: 20161114
